FAERS Safety Report 8381790-2 (Version None)
Quarter: 2012Q2

REPORT INFORMATION
  Report Type: 
  Country: None (occurrence: None)
  Receive Date: 20120522
  Receipt Date: 20120522
  Transmission Date: 20120825
  Serious: Yes (Other)
  Sender: FDA-Public Use
  Company Number: None

PATIENT
  Age: 66 Year
  Sex: Female
  Weight: 104.5 kg

DRUGS (1)
  1. OMEPRAZOLE [Suspect]
     Indication: GASTROOESOPHAGEAL REFLUX DISEASE
     Dosage: 23 MG DAILY ORAL
     Route: 048
     Dates: start: 20120220, end: 20120317

REACTIONS (5)
  - DIZZINESS [None]
  - DRY MOUTH [None]
  - PAIN OF SKIN [None]
  - MIGRAINE [None]
  - NECK PAIN [None]
